FAERS Safety Report 8054729-7 (Version None)
Quarter: 2012Q1

REPORT INFORMATION
  Report Type: 
  Country: None (occurrence: None)
  Receive Date: 20120111
  Receipt Date: 20111228
  Transmission Date: 20120608
  Serious: Yes (Other)
  Sender: FDA-Public Use
  Company Number: JPI-P-018616

PATIENT
  Age: 40 Year
  Sex: Female

DRUGS (1)
  1. XYREM [Suspect]
     Indication: INSOMNIA
     Dosage: 4.5 GM (2.25 GM, 2 IN 1 D), ORAL
     Route: 048
     Dates: start: 20111128, end: 20110101

REACTIONS (12)
  - HEADACHE [None]
  - CONDITION AGGRAVATED [None]
  - HALLUCINATION [None]
  - BODY TEMPERATURE DECREASED [None]
  - BLOOD POTASSIUM DECREASED [None]
  - INSOMNIA [None]
  - DIZZINESS [None]
  - CONFUSIONAL STATE [None]
  - DECREASED APPETITE [None]
  - DEHYDRATION [None]
  - HOT FLUSH [None]
  - COLD SWEAT [None]
